FAERS Safety Report 8910079 (Version 3)
Quarter: 2012Q4

REPORT INFORMATION
  Report Type: Report from Study
  Country: US (occurrence: US)
  Receive Date: 20121115
  Receipt Date: 20121206
  Transmission Date: 20130627
  Serious: Yes (Hospitalization)
  Sender: FDA-Public Use
  Company Number: US-JNJFOC-20121105387

PATIENT
  Age: 14 Year
  Sex: Female
  Weight: 44.7 kg

DRUGS (9)
  1. REMICADE [Suspect]
     Indication: INFLAMMATORY BOWEL DISEASE
     Route: 042
     Dates: start: 20081004
  2. REMICADE [Suspect]
     Indication: INFLAMMATORY BOWEL DISEASE
     Route: 042
     Dates: start: 20120703
  3. HUMIRA [Concomitant]
     Dates: start: 200906, end: 201206
  4. IBUPROFEN [Concomitant]
  5. PEPTAMEN [Concomitant]
  6. CHOLECALCIFEROL [Concomitant]
  7. 6-MERCAPTOPURINE [Concomitant]
  8. ALL OTHER THERAPEUTIC PRODUCTS [Concomitant]
  9. ANTIBIOTICS FOR IBD [Concomitant]

REACTIONS (1)
  - Inflammatory bowel disease [Recovered/Resolved]
